FAERS Safety Report 12266465 (Version 4)
Quarter: 2018Q3

REPORT INFORMATION
  Report Type: Report from Study
  Country: None (occurrence: US)
  Receive Date: 20160414
  Receipt Date: 20180820
  Transmission Date: 20181010
  Serious: Yes (Hospitalization, Other)
  Sender: FDA-Public Use
  Company Number: US-ABBVIE-16K-163-1601723-00

PATIENT
  Age: 55 Year
  Sex: Female
  Weight: 42.68 kg

DRUGS (8)
  1. MIRALAX [Concomitant]
     Active Substance: POLYETHYLENE GLYCOL 3350
     Indication: CONSTIPATION
  2. OMEPRAZOLE. [Concomitant]
     Active Substance: OMEPRAZOLE
     Indication: DYSPEPSIA
  3. HUMIRA [Suspect]
     Active Substance: ADALIMUMAB
     Route: 058
     Dates: start: 20160509, end: 2016
  4. CARVEDILOL. [Concomitant]
     Active Substance: CARVEDILOL
     Indication: HYPERTENSION
  5. LISINOPRIL. [Concomitant]
     Active Substance: LISINOPRIL
     Indication: BLOOD PRESSURE MEASUREMENT
  6. ATORVASTATIN [Concomitant]
     Active Substance: ATORVASTATIN
     Indication: BLOOD CHOLESTEROL
  7. HUMIRA [Suspect]
     Active Substance: ADALIMUMAB
     Indication: CROHN^S DISEASE
     Route: 058
     Dates: start: 20150730, end: 201603
  8. HUMIRA [Suspect]
     Active Substance: ADALIMUMAB
     Route: 058

REACTIONS (16)
  - Diarrhoea [Not Recovered/Not Resolved]
  - Asthenia [Unknown]
  - Headache [Not Recovered/Not Resolved]
  - Angiopathy [Recovered/Resolved]
  - Renal failure [Unknown]
  - Vitamin D decreased [Unknown]
  - Intestinal obstruction [Recovered/Resolved]
  - Intestinal ischaemia [Recovered/Resolved]
  - Crohn^s disease [Recovered/Resolved]
  - Amnesia [Recovered/Resolved]
  - Fatigue [Unknown]
  - Appendicectomy [Recovered/Resolved]
  - Abdominal tenderness [Not Recovered/Not Resolved]
  - Abdominal adhesions [Recovered/Resolved]
  - Nasopharyngitis [Not Recovered/Not Resolved]
  - Abdominal mass [Recovered/Resolved]

NARRATIVE: CASE EVENT DATE: 2016
